FAERS Safety Report 8277768-X (Version None)
Quarter: 2012Q2

REPORT INFORMATION
  Report Type: 
  Country: None (occurrence: None)
  Receive Date: 20120412
  Receipt Date: 20120404
  Transmission Date: 20120825
  Serious: Yes (Hospitalization)
  Sender: FDA-Public Use
  Company Number: DE-JNJFOC-20120405100

PATIENT
  Age: 91 Year
  Sex: Female

DRUGS (2)
  1. XARELTO [Suspect]
     Indication: ILL-DEFINED DISORDER
     Route: 048
  2. MARCUMAR [Concomitant]

REACTIONS (4)
  - HAEMOGLOBIN DECREASED [None]
  - MELAENA [None]
  - TOOTH DISCOLOURATION [None]
  - ERUCTATION [None]
